FAERS Safety Report 16544454 (Version 3)
Quarter: 2022Q3

REPORT INFORMATION
  Report Type: Spontaneous
  Country: US (occurrence: US)
  Receive Date: 20190709
  Receipt Date: 20220913
  Transmission Date: 20221027
  Serious: No
  Sender: FDA-Public Use
  Company Number: US-PFIZER INC-2018434999

PATIENT
  Age: 74 Year
  Sex: Male
  Weight: 99.773 kg

DRUGS (4)
  1. TOVIAZ [Suspect]
     Active Substance: FESOTERODINE FUMARATE
     Indication: Bladder spasm
     Dosage: 8 MG, UNK
  2. TOVIAZ [Suspect]
     Active Substance: FESOTERODINE FUMARATE
     Dosage: UNK
  3. ISOSORBIDE [Concomitant]
     Active Substance: ISOSORBIDE
     Indication: Hypertension
     Dosage: 30 MG, 1X/DAY (EVERY MORNING)
  4. HYDRALAZINE [Concomitant]
     Active Substance: HYDRALAZINE HYDROCHLORIDE
     Indication: Hypertension
     Dosage: 25 MG ONE HALF TABLET THEE TIMES A DAY

REACTIONS (3)
  - Product dispensing error [Unknown]
  - Drug effective for unapproved indication [Unknown]
  - Off label use [Unknown]

NARRATIVE: CASE EVENT DATE: 20180730
